FAERS Safety Report 4513137-3 (Version None)
Quarter: 2004Q4

REPORT INFORMATION
  Report Type: 
  Country: None (occurrence: None)
  Receive Date: 20041124
  Receipt Date: 20041116
  Transmission Date: 20050328
  Serious: Yes (Other)
  Sender: FDA-Public Use
  Company Number: HQWYE539421JUN04

PATIENT
  Age: 48 Year
  Sex: Male
  Weight: 108.96 kg

DRUGS (10)
  1. EFFEXOR XR [Suspect]
     Indication: STRESS SYMPTOMS
     Dosage: SEE IMAGE
     Route: 048
     Dates: start: 20020601, end: 20030101
  2. EFFEXOR XR [Suspect]
     Indication: STRESS SYMPTOMS
     Dosage: SEE IMAGE
     Route: 048
     Dates: start: 20030101, end: 20030201
  3. FLENDIL (FELODIPINE) [Concomitant]
  4. ZOCOR [Concomitant]
  5. INDERAL LA [Concomitant]
  6. ETODOLAC [Concomitant]
  7. ALLEGRA [Concomitant]
  8. TRICOR [Concomitant]
  9. ZITHROMAX [Concomitant]
  10. TRIMOX [Concomitant]

REACTIONS (21)
  - ANXIETY [None]
  - ASTHENIA [None]
  - BLOOD GLUCOSE INCREASED [None]
  - BRUXISM [None]
  - CHEST PAIN [None]
  - CONFUSIONAL STATE [None]
  - DISTURBANCE IN ATTENTION [None]
  - DIZZINESS [None]
  - DRUG DEPENDENCE [None]
  - DRUG WITHDRAWAL SYNDROME [None]
  - DYSPHEMIA [None]
  - HAEMATOCRIT DECREASED [None]
  - HEADACHE [None]
  - HEART RATE INCREASED [None]
  - INSOMNIA [None]
  - MEAN PLATELET VOLUME INCREASED [None]
  - RED BLOOD CELL COUNT DECREASED [None]
  - RESTLESSNESS [None]
  - SPEECH DISORDER [None]
  - VERTIGO [None]
  - VISION BLURRED [None]
